FAERS Safety Report 7743398-9 (Version None)
Quarter: 2011Q3

REPORT INFORMATION
  Report Type: 
  Country: None (occurrence: None)
  Receive Date: 20110909
  Receipt Date: 20110909
  Transmission Date: 20111222
  Serious: Yes (Hospitalization)
  Sender: FDA-Public Use
  Company Number: None

PATIENT
  Sex: Female
  Weight: 64 kg

DRUGS (2)
  1. TAXOL [Suspect]
     Dosage: 299 MG
  2. CARBOPLATIN [Suspect]
     Dosage: 722 MG

REACTIONS (14)
  - DIARRHOEA [None]
  - FATIGUE [None]
  - HYPONATRAEMIA [None]
  - STAPHYLOCOCCAL INFECTION [None]
  - CELLULITIS [None]
  - FEBRILE NEUTROPENIA [None]
  - DEHYDRATION [None]
  - RASH [None]
  - BLOOD CULTURE POSITIVE [None]
  - OEDEMA PERIPHERAL [None]
  - THROMBOCYTOPENIA [None]
  - CONFUSIONAL STATE [None]
  - ENTEROCOCCAL INFECTION [None]
  - HYPOKALAEMIA [None]
